FAERS Safety Report 16019676 (Version 1)
Quarter: 2019Q1

REPORT INFORMATION
  Report Type: Spontaneous
  Country: US (occurrence: US)
  Receive Date: 20190228
  Receipt Date: 20190228
  Transmission Date: 20190418
  Serious: No
  Sender: FDA-Public Use
  Company Number: US-VIFOR (INTERNATIONAL) INC.-VIT-2019-01729

PATIENT
  Age: 83 Year
  Sex: Female

DRUGS (15)
  1. VELTASSA [Suspect]
     Active Substance: PATIROMER
     Indication: HYPERKALAEMIA
     Route: 048
     Dates: start: 20190208
  2. LANTUS SOLOSTAR [Concomitant]
     Active Substance: INSULIN GLARGINE
  3. FOLIC ACID. [Concomitant]
     Active Substance: FOLIC ACID
  4. PANTOPRAZOLE SODIUM. [Concomitant]
     Active Substance: PANTOPRAZOLE SODIUM
  5. AMLODIPINE BESYLATE. [Concomitant]
     Active Substance: AMLODIPINE BESYLATE
  6. LEVOTHYROXINE SODIUM. [Concomitant]
     Active Substance: LEVOTHYROXINE SODIUM
  7. METHOTREXATE. [Concomitant]
     Active Substance: METHOTREXATE
  8. FERROUS SULFATE ER [Concomitant]
     Dosage: PROLONGED RELEASE
  9. FUROSEMIDE. [Concomitant]
     Active Substance: FUROSEMIDE
  10. MELOXICAM. [Concomitant]
     Active Substance: MELOXICAM
  11. ATORVASTATIN CALCIUM. [Concomitant]
     Active Substance: ATORVASTATIN CALCIUM
  12. METFORMIN HYDROCHLORIDE. [Concomitant]
     Active Substance: METFORMIN HYDROCHLORIDE
  13. SULFASALAZINE. [Concomitant]
     Active Substance: SULFASALAZINE
  14. TOBRAMYCIN. [Concomitant]
     Active Substance: TOBRAMYCIN
  15. STOOL SOFTENER (DOCUSATE) [Concomitant]
     Active Substance: DOCUSATE

REACTIONS (1)
  - Constipation [Unknown]

NARRATIVE: CASE EVENT DATE: 201902
